FAERS Safety Report 22171676 (Version 1)
Quarter: 2023Q2

REPORT INFORMATION
  Report Type: Spontaneous
  Country: US (occurrence: None)
  Receive Date: 20230403
  Receipt Date: 20230403
  Transmission Date: 20230721
  Serious: No
  Sender: FDA-Public Use
  Company Number: None

PATIENT
  Sex: Female

DRUGS (13)
  1. PROLIA [Suspect]
     Active Substance: DENOSUMAB
     Indication: Senile osteoporosis
     Dosage: OTHER FREQUENCY : EVERY 6 MONTHS;?
     Route: 058
     Dates: start: 20180117
  2. ADVAIR DISKU ER [Concomitant]
  3. ALBUTEROL AER HFA [Concomitant]
  4. ASPIRIN TAB EC [Concomitant]
  5. ATORVASTATIN [Concomitant]
     Active Substance: ATORVASTATIN
  6. AZITHROMYCIN TAB [Concomitant]
  7. LEVETIRACETA TAB [Concomitant]
  8. LEVETIRACETA TAB [Concomitant]
  9. PANTOPRAZOLE TAB [Concomitant]
  10. PREDNISONE [Concomitant]
     Active Substance: PREDNISONE
  11. VIMPAT TAB [Concomitant]
  12. VITAMIN D CAP [Concomitant]
  13. ZONISAMIDE CAP [Concomitant]

REACTIONS (1)
  - Lung neoplasm malignant [None]
